FAERS Safety Report 15851330 (Version 4)
Quarter: 2019Q3

REPORT INFORMATION
  Report Type: Spontaneous
  Country: ZA (occurrence: ZA)
  Receive Date: 20190122
  Receipt Date: 20190822
  Transmission Date: 20191004
  Serious: Yes (Death, Hospitalization, Other)
  Sender: FDA-Public Use
  Company Number: ZA-ROCHE-2249460

PATIENT
  Sex: Female

DRUGS (1)
  1. ACTILYSE [Suspect]
     Active Substance: ALTEPLASE
     Indication: ISCHAEMIC STROKE
     Route: 042
     Dates: start: 20181219, end: 20181219

REACTIONS (8)
  - Aphasia [Unknown]
  - Haemorrhagic transformation stroke [Fatal]
  - Cerebral haemorrhage [Unknown]
  - Basilar artery occlusion [Unknown]
  - Off label use [Unknown]
  - Basilar artery stenosis [Unknown]
  - Oedema [Unknown]
  - Locked-in syndrome [Unknown]

NARRATIVE: CASE EVENT DATE: 20181220
